FAERS Safety Report 8890275 (Version 1)
Quarter: 2012Q4

REPORT INFORMATION
  Report Type: 
  Country: US (occurrence: US)
  Receive Date: 20121107
  Receipt Date: 20121107
  Transmission Date: 20130627
  Serious: Yes (Hospitalization, Other)
  Sender: FDA-Public Use
  Company Number: US-ELI_LILLY_AND_COMPANY-US201210009199

PATIENT
  Age: 65 Year
  Sex: Male

DRUGS (1)
  1. CYMBALTA [Suspect]
     Indication: MOOD ALTERED
     Dosage: 30 mg, qd
     Dates: start: 20120927

REACTIONS (4)
  - Bile duct obstruction [Unknown]
  - Liver function test abnormal [Unknown]
  - Jaundice [Unknown]
  - Bile duct stone [Unknown]
